FAERS Safety Report 6370787-X (Version None)
Quarter: 2009Q3

REPORT INFORMATION
  Report Type: 
  Country: None (occurrence: None)
  Receive Date: 20090923
  Receipt Date: 20070731
  Transmission Date: 20100115
  Serious: Yes (Hospitalization)
  Sender: FDA-Public Use
  Company Number: US-ASTRAZENECA-2006UW23665

PATIENT
  Age: 15846 Day
  Sex: Female
  Weight: 86.2 kg

DRUGS (11)
  1. SEROQUEL [Suspect]
     Indication: BIPOLAR DISORDER
     Dosage: 175MG-300MG
     Route: 048
     Dates: start: 20030101
  2. SEROQUEL [Suspect]
     Dosage: 25-600 MG
     Route: 048
     Dates: start: 20031201
  3. HALDOL [Concomitant]
  4. NAVANE [Concomitant]
  5. THORAZINE [Concomitant]
  6. TRILAFON [Concomitant]
  7. ZYPREXA [Concomitant]
  8. CLONAZEPAM [Concomitant]
     Dates: start: 20031201
  9. ALPRAZOLAM [Concomitant]
     Dates: start: 20011024
  10. ZOLOFT [Concomitant]
     Dosage: STRENGTH- 100 MG, 50 MG
     Dates: start: 20030718
  11. CYMBALTA [Concomitant]
     Route: 048
     Dates: start: 20041007

REACTIONS (1)
  - PANCREATITIS [None]
